FAERS Safety Report 22646129 (Version 1)
Quarter: 2023Q2

REPORT INFORMATION
  Report Type: Spontaneous
  Country: US (occurrence: US)
  Receive Date: 20230627
  Receipt Date: 20230627
  Transmission Date: 20230722
  Serious: No
  Sender: FDA-Public Use
  Company Number: US-TEVA-2023-US-2897524

PATIENT

DRUGS (3)
  1. AMOXICILLIN [Suspect]
     Active Substance: AMOXICILLIN
     Indication: Infection
     Dosage: 875
     Route: 065
  2. IBRANCE [Suspect]
     Active Substance: PALBOCICLIB
     Indication: Product used for unknown indication
     Route: 065
  3. FASLODEX [Concomitant]
     Active Substance: FULVESTRANT
     Indication: Product used for unknown indication
     Route: 065

REACTIONS (7)
  - Feeling abnormal [Unknown]
  - Diarrhoea [Unknown]
  - Infection [Unknown]
  - Pain [Unknown]
  - Loss of personal independence in daily activities [Unknown]
  - Oral pain [Unknown]
  - Swelling face [Unknown]

NARRATIVE: CASE EVENT DATE: 20230602
